FAERS Safety Report 4411886-9 (Version None)
Quarter: 2004Q3

REPORT INFORMATION
  Report Type: 
  Country: None (occurrence: None)
  Receive Date: 20040730
  Receipt Date: 20030818
  Transmission Date: 20050211
  Serious: No
  Sender: FDA-Public Use
  Company Number: US-GLAXOSMITHKLINE-A0422342A

PATIENT
  Age: 75 Year
  Sex: Female

DRUGS (3)
  1. RANITIDINE [Suspect]
     Dosage: 150MG VARIABLE DOSE
     Route: 048
  2. NEXIUM [Suspect]
  3. LORAZEPAM [Concomitant]

REACTIONS (6)
  - ARTHRALGIA [None]
  - BARRETT'S OESOPHAGUS [None]
  - MYALGIA [None]
  - PAIN [None]
  - PARAESTHESIA [None]
  - VOMITING [None]
